FAERS Safety Report 5536244-5 (Version None)
Quarter: 2007Q4

REPORT INFORMATION
  Report Type: 
  Country: None (occurrence: None)
  Receive Date: 20071206
  Receipt Date: 20071129
  Transmission Date: 20080405
  Serious: Yes (Other)
  Sender: FDA-Public Use
  Company Number: US-PFIZER INC-2007083971

PATIENT
  Sex: Male
  Weight: 75.3 kg

DRUGS (2)
  1. MARAVIROC [Suspect]
     Indication: HIV INFECTION
     Route: 048
     Dates: start: 20070617, end: 20070827
  2. NORVIR [Suspect]
     Indication: HIV INFECTION
     Route: 048

REACTIONS (2)
  - BLOOD GLUCOSE INCREASED [None]
  - VISION BLURRED [None]
